FAERS Safety Report 8041498-X (Version None)
Quarter: 2012Q1

REPORT INFORMATION
  Report Type: 
  Country: None (occurrence: None)
  Receive Date: 20120112
  Receipt Date: 20120103
  Transmission Date: 20120608
  Serious: Yes (Other)
  Sender: FDA-Public Use
  Company Number: US-PFIZER INC-2012001692

PATIENT
  Sex: Male
  Weight: 99.773 kg

DRUGS (5)
  1. RITALIN [Concomitant]
     Dosage: UNK
  2. VIAGRA [Suspect]
     Dosage: 100 MG, 1X/DAY
     Route: 048
     Dates: start: 20010101
  3. VIAGRA [Suspect]
     Dosage: UNK
     Route: 048
  4. NEURONTIN [Concomitant]
     Dosage: UNK
  5. SALSALATE [Concomitant]
     Dosage: UNK

REACTIONS (2)
  - NERVE INJURY [None]
  - ROAD TRAFFIC ACCIDENT [None]
